FAERS Safety Report 6769118-2 (Version None)
Quarter: 2010Q2

REPORT INFORMATION
  Report Type: 
  Country: None (occurrence: None)
  Receive Date: 20100603
  Receipt Date: 20100528
  Transmission Date: 20101027
  Serious: Yes (Other)
  Sender: FDA-Public Use
  Company Number: 2010SP023691

PATIENT
  Age: 40 Year
  Sex: Female
  Weight: 85 kg

DRUGS (9)
  1. ROCURONIUM BROMIDE [Suspect]
     Indication: NEUROMUSCULAR BLOCKING THERAPY
     Dosage: 60 MG;
     Dates: start: 20100420
  2. FENTANYL (CON.) [Concomitant]
  3. SUXAMETHONIUM (CON.) [Concomitant]
  4. PROPOFOL (CON.) [Concomitant]
  5. MORPHINE (CON.) [Concomitant]
  6. AMPICILLIN (CON.) [Concomitant]
  7. GENTAMICIN (CON.) [Concomitant]
  8. ISOFLURANE (CON.) [Concomitant]
  9. FLAGYL (CON.) [Concomitant]

REACTIONS (4)
  - ACUTE ABDOMEN [None]
  - DRUG EFFECT PROLONGED [None]
  - NEUROMUSCULAR BLOCKADE [None]
  - PRODUCT QUALITY ISSUE [None]
